FAERS Safety Report 6966417-6 (Version None)
Quarter: 2010Q3

REPORT INFORMATION
  Report Type: 
  Country: None (occurrence: None)
  Receive Date: 20100904
  Receipt Date: 20100616
  Transmission Date: 20110219
  Serious: Yes (Other)
  Sender: FDA-Public Use
  Company Number: PHHY2010IN52473

PATIENT
  Age: 29 Year
  Sex: Female

DRUGS (7)
  1. PARLODEL [Suspect]
     Dosage: 1.25 MG, BID
  2. AMANTADINE [Suspect]
     Dosage: 100 MG, BID
  3. LEVODOPA [Concomitant]
     Dosage: EVERY FOUR HRS (100/25 MG)
  4. ROPINIROLE [Concomitant]
     Dosage: 0.5 MG, TID
  5. BENZHEXOL [Concomitant]
     Dosage: 2 MG, TID
  6. CHORIONIC GONADOTROPIN [Concomitant]
     Dosage: 10000 IU, UNK
  7. PROGESTERONE [Concomitant]
     Dosage: 200 MG, TID

REACTIONS (3)
  - CAESAREAN SECTION [None]
  - DRUG EXPOSURE DURING PREGNANCY [None]
  - DRUG EXPOSURE VIA BREAST MILK [None]
